FAERS Safety Report 8901632 (Version 1)
Quarter: 2012Q4

REPORT INFORMATION
  Report Type: Spontaneous
  Country: US (occurrence: None)
  Receive Date: 20121031
  Receipt Date: 20121031
  Transmission Date: 20130627
  Serious: Yes (Death, Other)
  Sender: FDA-Public Use
  Company Number: 1457436

PATIENT
  Age: 65 Year
  Sex: Female

DRUGS (14)
  1. DOCETAXEL [Suspect]
     Indication: BREAST CANCER
     Dosage: 75 mg/m2 x 5 doses
     Dates: start: 20120904
  2. CARBOPLATIN [Concomitant]
  3. TRASTUZUMAB [Concomitant]
  4. PEGFILGRASTIM [Concomitant]
  5. DEXAMETHASONE [Concomitant]
  6. HERCEPTIN [Concomitant]
  7. DIOVAN [Concomitant]
  8. CYMBALTA [Concomitant]
  9. PRAVASTATIN [Concomitant]
  10. XANAX [Concomitant]
  11. HYDROCODONE/IBUPROFEN [Concomitant]
  12. IBUPROFEN [Concomitant]
  13. ZOFRAN [Concomitant]
  14. COMPAZINE [Concomitant]

REACTIONS (7)
  - Multi-organ failure [None]
  - Septic shock [None]
  - Herpes simplex [None]
  - Disseminated intravascular coagulation [None]
  - Shock haemorrhagic [None]
  - Candida pneumonia [None]
  - Pneumonia bacterial [None]
